FAERS Safety Report 4758241-X (Version None)
Quarter: 2005Q3

REPORT INFORMATION
  Report Type: 
  Country: None (occurrence: None)
  Receive Date: 20050831
  Receipt Date: 20050825
  Transmission Date: 20060218
  Serious: Yes (Hospitalization)
  Sender: FDA-Public Use
  Company Number: US-MERCK-0508USA04177

PATIENT
  Age: 71 Year
  Sex: Male

DRUGS (7)
  1. VIOXX [Suspect]
     Indication: MUSCULOSKELETAL STIFFNESS
     Route: 048
     Dates: end: 20040930
  2. VIOXX [Suspect]
     Indication: ARTHRITIS
     Route: 048
     Dates: end: 20040930
  3. LEVOTHYROXINE SODIUM [Concomitant]
     Route: 065
  4. AMITRIPTYLINE HYDROCHLORIDE [Concomitant]
     Route: 065
  5. ATACAND [Concomitant]
     Route: 065
  6. LIPITOR [Concomitant]
     Route: 065
  7. ALBUTEROL [Concomitant]
     Route: 065

REACTIONS (3)
  - AORTIC ANEURYSM [None]
  - GASTRIC DISORDER [None]
  - SEXUAL DYSFUNCTION [None]
